FAERS Safety Report 10363077 (Version 2)
Quarter: 2014Q3

REPORT INFORMATION
  Report Type: Spontaneous
  Country: US (occurrence: MX)
  Receive Date: 20140805
  Receipt Date: 20140903
  Transmission Date: 20150326
  Serious: Yes (Hospitalization)
  Sender: FDA-Public Use
  Company Number: MX-FRI-1000069595

PATIENT
  Age: 63 Year
  Sex: Female

DRUGS (4)
  1. ROFLUMILAST [Suspect]
     Active Substance: ROFLUMILAST
     Indication: CHRONIC OBSTRUCTIVE PULMONARY DISEASE
  2. ROFLUMILAST [Suspect]
     Active Substance: ROFLUMILAST
     Indication: OXYGEN CONSUMPTION
     Dosage: 0.5 DF
     Dates: start: 201311, end: 2013
  3. ROFLUMILAST [Suspect]
     Active Substance: ROFLUMILAST
     Indication: OXYGEN CONSUMPTION
     Dosage: 1 DF
     Dates: start: 2013, end: 2014
  4. ROFLUMILAST [Suspect]
     Active Substance: ROFLUMILAST
     Indication: CHRONIC OBSTRUCTIVE PULMONARY DISEASE
     Dosage: 0.5 DF
     Dates: start: 2014, end: 201403

REACTIONS (6)
  - Weight decreased [Unknown]
  - Inappropriate schedule of drug administration [Recovered/Resolved]
  - Abdominal pain upper [Unknown]
  - Oxygen saturation decreased [Unknown]
  - Diarrhoea [Unknown]
  - Pain [Unknown]

NARRATIVE: CASE EVENT DATE: 201311
